FAERS Safety Report 7233005-6 (Version None)
Quarter: 2011Q1

REPORT INFORMATION
  Report Type: 
  Country: None (occurrence: None)
  Receive Date: 20110119
  Receipt Date: 20110114
  Transmission Date: 20110831
  Serious: Yes (Hospitalization)
  Sender: FDA-Public Use
  Company Number: US-PFIZER INC-2011010233

PATIENT
  Sex: Female
  Weight: 66.893 kg

DRUGS (9)
  1. RESTORIL [Concomitant]
     Dosage: UNK
  2. AVAPRO [Concomitant]
     Dosage: 150 MG, 2X/DAY
  3. ATENOLOL [Concomitant]
     Dosage: 50 MG, 2X/DAY
  4. LORTAB [Concomitant]
     Dosage: [HYDROCODONE BITARTRATE 10 MG]/[PARACETAMOL 500 MG], AS NEEDED
  5. PLAVIX [Concomitant]
     Dosage: 25 MG, 1X/DAY
  6. LIPITOR [Concomitant]
     Dosage: 40 MG, 1X/DAY
  7. LEVOTHYROXINE [Concomitant]
     Dosage: 25 UG, 1X/DAY
  8. DETROL [Suspect]
     Indication: POLLAKIURIA
     Dosage: 4 MG, 1X/DAY
     Route: 048
     Dates: start: 20101123, end: 20110107
  9. ZETIA [Concomitant]
     Dosage: 6 MG, 1X/DAY

REACTIONS (1)
  - METHAEMOGLOBINAEMIA [None]
